FAERS Safety Report 18623963 (Version 3)
Quarter: 2021Q4

REPORT INFORMATION
  Report Type: Other
  Country: JP (occurrence: JP)
  Receive Date: 20201216
  Receipt Date: 20211210
  Transmission Date: 20220303
  Serious: Yes (Death, Other)
  Sender: FDA-Public Use
  Company Number: JP-CHUGAI-A2017042478ROCHE

PATIENT
  Age: 75 Year
  Sex: Female

DRUGS (5)
  1. AVASTIN [Suspect]
     Active Substance: BEVACIZUMAB
     Indication: Neuroendocrine tumour of the rectum
     Dosage: DOSAGE IS UNCERTAIN.
     Route: 041
  2. OXALIPLATIN [Concomitant]
     Active Substance: OXALIPLATIN
     Indication: Neuroendocrine tumour of the rectum
     Dosage: DOSAGE IS UNCERTAIN.
     Route: 041
  3. FLUOROURACIL [Concomitant]
     Active Substance: FLUOROURACIL
     Indication: Neuroendocrine tumour of the rectum
     Dosage: DOSAGE IS UNCERTAIN.
     Route: 040
  4. FLUOROURACIL [Concomitant]
     Active Substance: FLUOROURACIL
     Dosage: DOSAGE IS UNCERTAIN.
     Route: 041
  5. LEVOLEUCOVORIN CALCIUM [Concomitant]
     Active Substance: LEVOLEUCOVORIN CALCIUM
     Indication: Neuroendocrine tumour of the rectum
     Dosage: DOSAGE IS UNCERTAIN.
     Route: 041

REACTIONS (4)
  - Disease progression [Fatal]
  - Metastases to skin [Unknown]
  - Metastases to liver [Unknown]
  - Off label use [Unknown]
